FAERS Safety Report 17781981 (Version 2)
Quarter: 2020Q2

REPORT INFORMATION
  Report Type: Spontaneous
  Country: US (occurrence: US)
  Receive Date: 20200513
  Receipt Date: 20200520
  Transmission Date: 20200714
  Serious: No
  Sender: FDA-Public Use
  Company Number: US-PFIZER INC-2019435013

PATIENT
  Age: 6 Year
  Sex: Male
  Weight: 16.78 kg

DRUGS (4)
  1. GENOTROPIN [Suspect]
     Active Substance: SOMATROPIN
     Indication: ATYPICAL TERATOID/RHABDOID TUMOUR OF CNS
     Dosage: 0.5 MG, DAILY
  2. GENOTROPIN [Suspect]
     Active Substance: SOMATROPIN
     Dosage: 0.5 MG, 1X/DAY
  3. GENOTROPIN [Suspect]
     Active Substance: SOMATROPIN
     Dosage: 0.5 MG, DAILY (12MG CARTRIDGES 0.5MG DAILY)
     Dates: start: 20191227
  4. GENOTROPIN [Suspect]
     Active Substance: SOMATROPIN
     Dosage: UNK, RECEIVING DOSES FROM A GENOTROPIN 12MG CARTRIDGE

REACTIONS (6)
  - Off label use [Unknown]
  - Wrong device used [Unknown]
  - Product dose omission [Unknown]
  - Product use in unapproved indication [Unknown]
  - Overdose [Unknown]
  - Device leakage [Unknown]
